FAERS Safety Report 4627221-7 (Version None)
Quarter: 2005Q1

REPORT INFORMATION
  Report Type: 
  Country: None (occurrence: None)
  Receive Date: 20050330
  Receipt Date: 20050315
  Transmission Date: 20050727
  Serious: Yes (Hospitalization, Other)
  Sender: FDA-Public Use
  Company Number: 2005BI005712

PATIENT
  Age: 43 Year
  Sex: Female

DRUGS (5)
  1. NATALIZUMAB [Suspect]
     Indication: MULTIPLE SCLEROSIS
     Dosage: 300 MG; QM; IV
     Route: 042
     Dates: end: 20050215
  2. AVELOX [Concomitant]
  3. TYLENOL (CAPLET) [Concomitant]
  4. MOTRIN [Concomitant]
  5. COPAXONE [Concomitant]

REACTIONS (22)
  - BACK PAIN [None]
  - BACTERIA URINE [None]
  - BLOOD GLUCOSE INCREASED [None]
  - BLOOD URINE PRESENT [None]
  - BODY TEMPERATURE INCREASED [None]
  - DRUG HYPERSENSITIVITY [None]
  - EAR PAIN [None]
  - FALL [None]
  - HAND FRACTURE [None]
  - LYMPHOCYTE MORPHOLOGY ABNORMAL [None]
  - MONOCYTE PERCENTAGE INCREASED [None]
  - OEDEMA PERIPHERAL [None]
  - PAIN [None]
  - PANCYTOPENIA [None]
  - PROTHROMBIN TIME PROLONGED [None]
  - RADIUS FRACTURE [None]
  - RASH [None]
  - RED BLOOD CELL SEDIMENTATION RATE INCREASED [None]
  - SINUS CONGESTION [None]
  - UPPER RESPIRATORY TRACT INFECTION [None]
  - URINE ABNORMALITY [None]
  - WHITE BLOOD CELLS URINE [None]
